FAERS Safety Report 20083288 (Version 1)
Quarter: 2021Q4

REPORT INFORMATION
  Report Type: Spontaneous
  Country: ES (occurrence: ES)
  Receive Date: 20211117
  Receipt Date: 20211117
  Transmission Date: 20220303
  Serious: Yes (Hospitalization)
  Sender: FDA-Public Use
  Company Number: None

PATIENT
  Age: 64 Year
  Sex: Male

DRUGS (3)
  1. VALSARTAN [Interacting]
     Active Substance: VALSARTAN
     Indication: Hypertension
     Dosage: 40 MILLIGRAM, QD, (40MG 1 VEZ AL D?A)
     Route: 048
     Dates: start: 20210727, end: 20210825
  2. ALDACTONE [Interacting]
     Active Substance: SPIRONOLACTONE
     Indication: Hypertension
     Dosage: 25 MILLIGRAM, (25MG 1 VEZ AL D?A)
     Route: 048
     Dates: start: 20190517, end: 20210825
  3. ALDACTONE [Interacting]
     Active Substance: SPIRONOLACTONE
     Dosage: UNK

REACTIONS (2)
  - Hypotension [Recovered/Resolved]
  - Drug interaction [Unknown]

NARRATIVE: CASE EVENT DATE: 20210727
